FAERS Safety Report 6571051-6 (Version None)
Quarter: 2010Q1

REPORT INFORMATION
  Report Type: 
  Country: None (occurrence: None)
  Receive Date: 20100204
  Receipt Date: 20100125
  Transmission Date: 20100710
  Serious: Yes (Hospitalization)
  Sender: FDA-Public Use
  Company Number: US-BAXTER-2010BH001839

PATIENT
  Age: 76 Year
  Sex: Male

DRUGS (4)
  1. DIANEAL [Suspect]
     Indication: PERITONEAL DIALYSIS
     Route: 033
     Dates: start: 20091201, end: 20100115
  2. DIANEAL [Suspect]
     Route: 033
     Dates: start: 20100115, end: 20100119
  3. DIANEAL [Suspect]
     Route: 033
     Dates: start: 20100119, end: 20100123
  4. DIANEAL [Suspect]
     Indication: PERITONEAL DIALYSIS
     Route: 033
     Dates: start: 20091201, end: 20100115

REACTIONS (9)
  - ABDOMINAL DISTENSION [None]
  - CONSTIPATION [None]
  - DEVICE MALFUNCTION [None]
  - DYSPNOEA [None]
  - FLUID RETENTION [None]
  - HAEMODIALYSIS [None]
  - HEART RATE INCREASED [None]
  - MEDICAL DEVICE COMPLICATION [None]
  - PROCEDURAL COMPLICATION [None]
